FAERS Safety Report 6434063-9 (Version None)
Quarter: 2009Q4

REPORT INFORMATION
  Report Type: 
  Country: None (occurrence: None)
  Receive Date: 20091110
  Receipt Date: 20091102
  Transmission Date: 20100525
  Serious: Yes (Hospitalization)
  Sender: FDA-Public Use
  Company Number: NZ-ASTRAZENECA-2009SE23676

PATIENT
  Age: 28896 Day
  Sex: Female

DRUGS (5)
  1. OMEPRAZOLE [Suspect]
     Route: 048
     Dates: start: 20041024, end: 20041109
  2. GLICLAZIDE [Suspect]
     Route: 048
     Dates: end: 20041109
  3. CILAZAPRIL [Suspect]
     Route: 048
     Dates: start: 20041025, end: 20041027
  4. DIGOXIN [Concomitant]
     Dosage: 125 RG
     Route: 048
     Dates: end: 20041027
  5. ROXITHROMYCIN [Concomitant]
     Route: 048
     Dates: start: 20041026, end: 20041101

REACTIONS (5)
  - CONVULSION [None]
  - DELIRIUM [None]
  - PURPURA [None]
  - RENAL FAILURE ACUTE [None]
  - VASCULITIS [None]
